FAERS Safety Report 6492856-6 (Version None)
Quarter: 2009Q4

REPORT INFORMATION
  Report Type: 
  Country: None (occurrence: None)
  Receive Date: 20091211
  Receipt Date: 20091211
  Transmission Date: 20100525
  Serious: No
  Sender: FDA-Public Use
  Company Number: None

PATIENT
  Age: 42 Year
  Sex: Female
  Weight: 60.782 kg

DRUGS (1)
  1. TREXIMET [Suspect]
     Indication: MIGRAINE
     Dosage: 1 TAB AS NEEDED PO
     Route: 048
     Dates: start: 20091210, end: 20091210

REACTIONS (3)
  - CHEST PAIN [None]
  - DRUG EFFECT DECREASED [None]
  - NASAL DISCOMFORT [None]
